FAERS Safety Report 8488195-4 (Version None)
Quarter: 2012Q3

REPORT INFORMATION
  Report Type: 
  Country: None (occurrence: None)
  Receive Date: 20120705
  Receipt Date: 20120627
  Transmission Date: 20120928
  Serious: Yes (Hospitalization)
  Sender: FDA-Public Use
  Company Number: US-ASTELLAS-2012US005304

PATIENT
  Sex: Female

DRUGS (2)
  1. ERLOTINIB HYDROCHLORIDE [Suspect]
     Indication: NON-SMALL CELL LUNG CANCER STAGE IV
     Dosage: 150 MG, UID/QD
     Route: 048
     Dates: start: 20120531
  2. CORTICOSTEROIDS [Suspect]
     Indication: PRODUCT USED FOR UNKNOWN INDICATION
     Dosage: UNK
     Route: 065

REACTIONS (11)
  - SEPSIS [None]
  - ESCHERICHIA INFECTION [None]
  - HYPERGLYCAEMIA [None]
  - FALL [None]
  - OEDEMA PERIPHERAL [None]
  - ACUTE RESPIRATORY FAILURE [None]
  - MALNUTRITION [None]
  - ASTHENIA [None]
  - ORAL CANDIDIASIS [None]
  - PULMONARY OEDEMA [None]
  - HEPATIC ENZYME INCREASED [None]
